FAERS Safety Report 11417107 (Version 2)
Quarter: 2015Q4

REPORT INFORMATION
  Report Type: Spontaneous
  Country: US (occurrence: US)
  Receive Date: 20150825
  Receipt Date: 20151030
  Transmission Date: 20160304
  Serious: No
  Sender: FDA-Public Use
  Company Number: US-BIOMARINAP-US-2015-107149

PATIENT
  Sex: Female
  Weight: 71.45 kg

DRUGS (1)
  1. KUVAN [Suspect]
     Active Substance: SAPROPTERIN DIHYDROCHLORIDE
     Indication: PHENYLKETONURIA
     Dosage: 1400 MG, QD
     Route: 048
     Dates: start: 20150716, end: 20150815

REACTIONS (1)
  - Drug ineffective [Unknown]
